FAERS Safety Report 15572694 (Version 1)
Quarter: 2018Q4

REPORT INFORMATION
  Report Type: Spontaneous
  Country: US (occurrence: US)
  Receive Date: 20181031
  Receipt Date: 20181031
  Transmission Date: 20190205
  Serious: No
  Sender: FDA-Public Use
  Company Number: US-MIST-TIR-2018-0091

PATIENT
  Age: 43 Year
  Sex: Female
  Weight: 89.89 kg

DRUGS (3)
  1. TIROSINT [Suspect]
     Active Substance: LEVOTHYROXINE SODIUM
     Indication: RADIOACTIVE IODINE THERAPY
     Dosage: 150MCG DAILY AND 300MCG ON SUNDAYS
     Route: 048
     Dates: start: 2016, end: 2017
  2. ESSENTIAL OILS. [Concomitant]
     Active Substance: ESSENTIAL OILS
     Indication: PRODUCT USED FOR UNKNOWN INDICATION
  3. TIROSINT [Suspect]
     Active Substance: LEVOTHYROXINE SODIUM
     Dosage: 150MCG DAILY
     Route: 048
     Dates: start: 2017

REACTIONS (7)
  - Muscle spasms [Unknown]
  - Fatigue [Unknown]
  - Product quality issue [Unknown]
  - Alopecia [Unknown]
  - Blood thyroid stimulating hormone increased [Unknown]
  - Drug ineffective [Unknown]
  - Contusion [Unknown]

NARRATIVE: CASE EVENT DATE: 201709
